FAERS Safety Report 20527648 (Version 1)
Quarter: 2022Q1

REPORT INFORMATION
  Report Type: Spontaneous
  Country: US (occurrence: US)
  Receive Date: 20220228
  Receipt Date: 20220228
  Transmission Date: 20220423
  Serious: No
  Sender: FDA-Public Use
  Company Number: US-PERRIGO-21US009927

PATIENT
  Age: 66 Year
  Sex: Female

DRUGS (2)
  1. ESTRADIOL [Suspect]
     Active Substance: ESTRADIOL
     Indication: Product used for unknown indication
     Dosage: 1 G, TWICE WEEKLY
     Route: 067
     Dates: start: 20210507
  2. ESTRADIOL [Suspect]
     Active Substance: ESTRADIOL
     Dosage: 1 MG, QD
     Route: 067
     Dates: start: 20210423, end: 20210506

REACTIONS (1)
  - Vulvovaginal mycotic infection [Recovered/Resolved]

NARRATIVE: CASE EVENT DATE: 20210701
